FAERS Safety Report 8794128 (Version 1)
Quarter: 2012Q4

REPORT INFORMATION
  Report Type: 
  Country: US (occurrence: US)
  Receive Date: 20120917
  Receipt Date: 20120917
  Transmission Date: 20130627
  Serious: Yes (Hospitalization)
  Sender: FDA-Public Use
  Company Number: PHEH2012US017864

PATIENT
  Age: 71 Year
  Sex: Male

DRUGS (1)
  1. ZORTRESS [Suspect]
     Indication: RENAL FAILURE CHRONIC
     Dosage: 0.75 mg, BID (2 AM and 1 PM)
     Route: 048
     Dates: start: 20120905

REACTIONS (3)
  - Hypoglycaemia [Unknown]
  - Cardiac enzymes increased [Unknown]
  - Stent malfunction [Unknown]
